FAERS Safety Report 10586373 (Version 1)
Quarter: 2014Q4

REPORT INFORMATION
  Report Type: Spontaneous
  Country: US (occurrence: US)
  Receive Date: 20141117
  Receipt Date: 20141117
  Transmission Date: 20150529
  Serious: Yes (Death)
  Sender: FDA-Public Use
  Company Number: US-ROCHE-1491589

PATIENT
  Age: 51 Year
  Sex: Male
  Weight: 88.4 kg

DRUGS (1)
  1. XOLAIR [Suspect]
     Active Substance: OMALIZUMAB
     Indication: ASTHMA
     Dosage: 150 VIAL
     Route: 058
     Dates: start: 201409, end: 20141105

REACTIONS (1)
  - Death [Fatal]

NARRATIVE: CASE EVENT DATE: 20141105
